FAERS Safety Report 7301490-7 (Version None)
Quarter: 2011Q1

REPORT INFORMATION
  Report Type: 
  Country: None (occurrence: None)
  Receive Date: 20110218
  Receipt Date: 20100608
  Transmission Date: 20110831
  Serious: No
  Sender: FDA-Public Use
  Company Number: US-BRISTOL-MYERS SQUIBB COMPANY-15134653

PATIENT
  Age: 29 Year
  Sex: Female
  Weight: 54 kg

DRUGS (4)
  1. SYNTHROID [Suspect]
  2. MULTIVITAMIN [Concomitant]
  3. MINERAL TAB [Concomitant]
  4. KENALOG [Suspect]
     Dosage: 1 OR 2 TRIGGER POINT INJ.

REACTIONS (3)
  - EUPHORIC MOOD [None]
  - TACHYCARDIA [None]
  - WEIGHT DECREASED [None]
